FAERS Safety Report 5096416-3 (Version None)
Quarter: 2006Q3

REPORT INFORMATION
  Report Type: 
  Country: None (occurrence: None)
  Receive Date: 20060905
  Receipt Date: 20060825
  Transmission Date: 20061208
  Serious: Yes (Hospitalization)
  Sender: FDA-Public Use
  Company Number: IT-BRACCO-BCM-001046

PATIENT
  Age: 84 Year
  Sex: Male

DRUGS (1)
  1. MULTIHANCE [Suspect]
     Route: 050
     Dates: start: 20060711, end: 20060711

REACTIONS (6)
  - CYANOSIS [None]
  - DYSPNOEA [None]
  - HYPERHIDROSIS [None]
  - HYPOTENSION [None]
  - RETCHING [None]
  - VOMITING [None]
